FAERS Safety Report 6719504-1 (Version None)
Quarter: 2010Q2

REPORT INFORMATION
  Report Type: 
  Country: None (occurrence: None)
  Receive Date: 20100511
  Receipt Date: 20100315
  Transmission Date: 20101027
  Serious: Yes (Death, Other)
  Sender: FDA-Public Use
  Company Number: TH-ROCHE-700708

PATIENT
  Age: 14 Year
  Sex: Female

DRUGS (1)
  1. OSELTAMIVIR PHOSPHATE [Suspect]
     Indication: PROPHYLAXIS
     Route: 065
     Dates: start: 20041017, end: 20041018

REACTIONS (5)
  - DEATH [None]
  - INFLUENZA LIKE ILLNESS [None]
  - LEUKOPENIA [None]
  - RESPIRATORY FAILURE [None]
  - THROMBOCYTOPENIA [None]
